FAERS Safety Report 4400948-8 (Version None)
Quarter: 2004Q3

REPORT INFORMATION
  Report Type: 
  Country: None (occurrence: None)
  Receive Date: 20040907
  Receipt Date: 20030821
  Transmission Date: 20050211
  Serious: No
  Sender: FDA-Public Use
  Company Number: US-BRISTOL-MYERS SQUIBB COMPANY-12362372

PATIENT
  Age: 4 Decade
  Sex: Male
  Weight: 125 kg

DRUGS (4)
  1. COUMADIN [Suspect]
     Indication: DEEP VEIN THROMBOSIS
     Dosage: DOSE INCREASED: ^7 MG, 1 TABLET DAILY ORALLY^ ON 18-AUG-2003.
     Route: 048
     Dates: start: 20030701
  2. LOVENOX [Concomitant]
     Indication: DEEP VEIN THROMBOSIS
     Dosage: INTERRUPTED ON 08-AUG-2003 AND RESTARTED ON 18-AUG-2003.
     Dates: start: 20030701
  3. MARIJUANA [Concomitant]
     Dosage: REGULAR USE.
  4. MULTI-VITAMIN [Concomitant]
     Dosage: WITHOUT VITAMIN K.

REACTIONS (1)
  - INTERNATIONAL NORMALISED RATIO DECREASED [None]
